FAERS Safety Report 5588577-4 (Version None)
Quarter: 2008Q1

REPORT INFORMATION
  Report Type: 
  Country: None (occurrence: None)
  Receive Date: 20080111
  Receipt Date: 20080108
  Transmission Date: 20080703
  Serious: Yes (Other)
  Sender: FDA-Public Use
  Company Number: US-ASTRAZENECA-2007UW25808

PATIENT
  Age: 837 Month
  Sex: Female
  Weight: 94.5 kg

DRUGS (5)
  1. ARIMIDEX [Suspect]
     Indication: BREAST CANCER
     Route: 048
     Dates: start: 20070921, end: 20071024
  2. ARIMIDEX [Suspect]
     Route: 048
     Dates: start: 20071205
  3. BENICAR [Concomitant]
     Indication: HYPERTENSION
     Dates: start: 20040601
  4. ARTEMISININ [Concomitant]
     Indication: BREAST CANCER
     Dates: end: 20071024
  5. LEVOXYL [Concomitant]
     Indication: THYROID DISORDER
     Dates: start: 20030601

REACTIONS (4)
  - ALANINE AMINOTRANSFERASE ABNORMAL [None]
  - ASPARTATE AMINOTRANSFERASE ABNORMAL [None]
  - BLOOD ALKALINE PHOSPHATASE ABNORMAL [None]
  - CHROMATURIA [None]
